FAERS Safety Report 14614999 (Version 1)
Quarter: 2018Q1

REPORT INFORMATION
  Report Type: Spontaneous
  Country: US (occurrence: US)
  Receive Date: 20180308
  Receipt Date: 20180308
  Transmission Date: 20180509
  Serious: No
  Sender: FDA-Public Use
  Company Number: US-TARO-2017TAR00878

PATIENT
  Age: 10 Year
  Sex: Male

DRUGS (3)
  1. ENALAPRIL MALEATE TABLETS USP 2.5 MG [Suspect]
     Active Substance: ENALAPRIL MALEATE
     Indication: CARDIAC DISORDER
     Dosage: 2.5 MG, 1X/DAY
     Route: 048
     Dates: start: 201511
  2. ENALAPRIL MALEATE TABLETS USP 2.5 MG [Suspect]
     Active Substance: ENALAPRIL MALEATE
     Dosage: 2.5 MG, 2X/DAY
     Route: 048
  3. ENALAPRIL MALEATE TABLETS USP 5 MG [Suspect]
     Active Substance: ENALAPRIL MALEATE
     Indication: CARDIAC DISORDER
     Dosage: 5 MG, 2X/DAY
     Route: 048
     Dates: end: 20171006

REACTIONS (1)
  - Hypersensitivity [Recovered/Resolved]

NARRATIVE: CASE EVENT DATE: 20171005
